FAERS Safety Report 9516715 (Version 1)
Quarter: 2013Q3

REPORT INFORMATION
  Report Type: Spontaneous
  Country: US (occurrence: US)
  Receive Date: 20130911
  Receipt Date: 20130911
  Transmission Date: 20140515
  Serious: Yes (Hospitalization)
  Sender: FDA-Public Use
  Company Number: US-ELI_LILLY_AND_COMPANY-US201309000421

PATIENT
  Age: 59 Year
  Sex: Female

DRUGS (9)
  1. HUMALOG LISPRO [Suspect]
     Indication: TYPE 2 DIABETES MELLITUS
     Dosage: UNK, PRN
     Dates: start: 20130801
  2. XANAX [Concomitant]
  3. ANTIVERT [Concomitant]
  4. DURAGESIC [Concomitant]
     Dosage: 50 MG, UNK
  5. ERGOCALCIFEROL [Concomitant]
     Dosage: 5000 U, WEEKLY (1/W)
  6. HYDROCODONE [Concomitant]
  7. LIPITOR [Concomitant]
  8. MIRAPEX [Concomitant]
  9. NORVASC [Concomitant]

REACTIONS (1)
  - Pneumonia [Unknown]
